FAERS Safety Report 20478561 (Version 1)
Quarter: 2022Q1

REPORT INFORMATION
  Report Type: Spontaneous
  Country: IR (occurrence: IR)
  Receive Date: 20220216
  Receipt Date: 20220216
  Transmission Date: 20220423
  Serious: Yes (Hospitalization, Other)
  Sender: FDA-Public Use
  Company Number: IR-IPCA LABORATORIES LIMITED-IPC-2022-IR-000184

PATIENT

DRUGS (2)
  1. TRAMADOL HYDROCHLORIDE [Suspect]
     Active Substance: TRAMADOL HYDROCHLORIDE
     Indication: Product used for unknown indication
     Dosage: 2250 MILLIGRAM (10 TABLETS OF 225 MILLIGRAM)
     Route: 048
  2. TRAMADOL HYDROCHLORIDE [Suspect]
     Active Substance: TRAMADOL HYDROCHLORIDE
     Dosage: 200 MILLIGRAM (2-3 TABLETS OF 200 MILLIGRAM)
     Route: 048

REACTIONS (9)
  - Rhabdomyolysis [Recovering/Resolving]
  - Generalised tonic-clonic seizure [Recovering/Resolving]
  - Metabolic acidosis [Recovering/Resolving]
  - Toxicity to various agents [Recovering/Resolving]
  - Acute kidney injury [Recovering/Resolving]
  - Pneumonia aspiration [Recovering/Resolving]
  - Sinus tachycardia [Recovering/Resolving]
  - Suicide attempt [Unknown]
  - Overdose [Unknown]
